FAERS Safety Report 24321331 (Version 4)
Quarter: 2024Q4

REPORT INFORMATION
  Report Type: Spontaneous
  Country: GB (occurrence: GB)
  Receive Date: 20240916
  Receipt Date: 20241119
  Transmission Date: 20250115
  Serious: Yes (Other)
  Sender: NOVO NORDISK
  Company Number: GB-NOVOPROD-1279578

PATIENT

DRUGS (1)
  1. OZEMPIC [Suspect]
     Active Substance: SEMAGLUTIDE
     Indication: Product used for unknown indication
     Dosage: 4X1MG

REACTIONS (3)
  - Overdose [Unknown]
  - Adverse drug reaction [Unknown]
  - Device defective [Unknown]

NARRATIVE: CASE EVENT DATE: 20240831
